FAERS Safety Report 6312378-2 (Version None)
Quarter: 2009Q3

REPORT INFORMATION
  Report Type: 
  Country: None (occurrence: None)
  Receive Date: 20090813
  Receipt Date: 20090803
  Transmission Date: 20100115
  Serious: No
  Sender: FDA-Public Use
  Company Number: 230200K09DEU

PATIENT
  Age: 43 Year
  Sex: Female

DRUGS (2)
  1. REBIF [Suspect]
     Indication: RELAPSING-REMITTING MULTIPLE SCLEROSIS
     Dosage: 44 MCG, 3 IN 1 WEEKS, SUBCUTANEOUS
     Route: 058
     Dates: start: 20090216, end: 20090727
  2. PARACETAMOL [Concomitant]

REACTIONS (3)
  - PRURITUS [None]
  - SMEAR CERVIX ABNORMAL [None]
  - UNEVALUABLE EVENT [None]
